FAERS Safety Report 14884883 (Version 4)
Quarter: 2018Q3

REPORT INFORMATION
  Report Type: Spontaneous
  Country: US (occurrence: US)
  Receive Date: 20180511
  Receipt Date: 20180806
  Transmission Date: 20181010
  Serious: No
  Sender: FDA-Public Use
  Company Number: US-009507513-1805USA004279

PATIENT
  Sex: Female

DRUGS (1)
  1. ASMANEX [Suspect]
     Active Substance: MOMETASONE FUROATE
     Dosage: 14 DOSE

REACTIONS (7)
  - Confusional state [Unknown]
  - Drug effect incomplete [Unknown]
  - Stress [Unknown]
  - Memory impairment [Unknown]
  - Visual acuity reduced [Unknown]
  - Malaise [Unknown]
  - Product quality issue [Unknown]
